FAERS Safety Report 11020257 (Version 1)
Quarter: 2015Q2

REPORT INFORMATION
  Report Type: Spontaneous
  Country: US (occurrence: US)
  Receive Date: 20150413
  Receipt Date: 20150413
  Transmission Date: 20150821
  Serious: Yes (Hospitalization)
  Sender: FDA-Public Use
  Company Number: US-ROCHE-1561419

PATIENT
  Age: 53 Year
  Sex: Male

DRUGS (4)
  1. COUMADIN [Concomitant]
     Active Substance: WARFARIN SODIUM
     Route: 065
  2. AVASTIN [Suspect]
     Active Substance: BEVACIZUMAB
     Indication: MALIGNANT PLEURAL EFFUSION
     Dosage: 15 MG/KG
     Route: 065
     Dates: end: 20150406
  3. CARBOPLATIN. [Concomitant]
     Active Substance: CARBOPLATIN
     Indication: LUNG NEOPLASM MALIGNANT
     Dosage: AUC 6
     Route: 065
  4. ALIMTA [Concomitant]
     Active Substance: PEMETREXED DISODIUM
     Indication: LUNG NEOPLASM MALIGNANT
     Route: 065

REACTIONS (8)
  - Vasculitis [Unknown]
  - Anaemia [Unknown]
  - Memory impairment [Unknown]
  - Arteriosclerosis [Unknown]
  - Headache [Unknown]
  - Visual impairment [Unknown]
  - Nuclear magnetic resonance imaging brain abnormal [Unknown]
  - Deep vein thrombosis [Unknown]
